FAERS Safety Report 8730381 (Version 5)
Quarter: 2014Q2

REPORT INFORMATION
  Report Type: Spontaneous
  Country: GB (occurrence: GB)
  Receive Date: 20120817
  Receipt Date: 20140428
  Transmission Date: 20141212
  Serious: Yes (Death)
  Sender: FDA-Public Use
  Company Number: PHHY2012GB070939

PATIENT
  Age: 12 Year
  Sex: Female

DRUGS (4)
  1. CITALOPRAM [Suspect]
  2. AMITRIPTYLINE [Suspect]
  3. DIHYDROCODEINE [Suspect]
  4. PARACETAMOL [Suspect]

REACTIONS (1)
  - Toxicity to various agents [Fatal]
